FAERS Safety Report 24000479 (Version 1)
Quarter: 2024Q2

REPORT INFORMATION
  Report Type: Spontaneous
  Country: US (occurrence: None)
  Receive Date: 20240621
  Receipt Date: 20240621
  Transmission Date: 20240716
  Serious: Yes (Other)
  Sender: FDA-Public Use
  Company Number: None

PATIENT
  Age: 51 Year
  Sex: Male
  Weight: 144 kg

DRUGS (9)
  1. JARDIANCE [Suspect]
     Active Substance: EMPAGLIFLOZIN
     Indication: Type 2 diabetes mellitus
     Dosage: OTHER QUANTITY : 1 TABLET(S);?FREQUENCY : DAILY;?
     Route: 048
  2. OMEPRAZOLE [Concomitant]
     Active Substance: OMEPRAZOLE
  3. METFORMIN [Concomitant]
  4. MOUNTAIN [Concomitant]
  5. GLIPIZIDE [Concomitant]
     Active Substance: GLIPIZIDE
  6. LISINOPRIL [Concomitant]
     Active Substance: LISINOPRIL
  7. TOASTING [Concomitant]
  8. NAPROXEN [Concomitant]
     Active Substance: NAPROXEN
  9. TESTOSTERONE [Concomitant]
     Active Substance: TESTOSTERONE

REACTIONS (1)
  - Fungal infection [None]

NARRATIVE: CASE EVENT DATE: 20240415
